FAERS Safety Report 9916883 (Version 1)
Quarter: 2014Q1

REPORT INFORMATION
  Report Type: Spontaneous
  Country: DE (occurrence: DE)
  Receive Date: 20140221
  Receipt Date: 20140221
  Transmission Date: 20141002
  Serious: Yes (Hospitalization, Other)
  Sender: FDA-Public Use
  Company Number: DE-ELI_LILLY_AND_COMPANY-DE201402004563

PATIENT
  Age: 73 Year
  Sex: Female

DRUGS (2)
  1. ZYPREXA [Suspect]
     Indication: PRODUCT USED FOR UNKNOWN INDICATION
     Dosage: 7.65 MG, UNKNOWN
     Route: 048
  2. SEROQUEL [Concomitant]
     Dosage: 1 DF, UNKNOWN

REACTIONS (1)
  - Pituitary tumour [Not Recovered/Not Resolved]
